FAERS Safety Report 17044385 (Version 1)
Quarter: 2019Q4

REPORT INFORMATION
  Report Type: Spontaneous
  Country: US (occurrence: US)
  Receive Date: 20191017
  Receipt Date: 20191017
  Transmission Date: 20200122
  Serious: No
  Sender: FDA-Public Use
  Company Number: None

PATIENT
  Age: 72 Year
  Sex: Female
  Weight: 65.77 kg

DRUGS (9)
  1. CALCIUM W/VIT D [Concomitant]
  2. GABAPENTIN 100MG CAPS [Suspect]
     Active Substance: GABAPENTIN
     Indication: PAIN IN EXTREMITY
     Dosage: 30 3 X 15/DAY
     Route: 048
     Dates: start: 20190822, end: 20190825
  3. MULTI VIT [Concomitant]
     Active Substance: VITAMINS
  4. GABAPENTIN 100MG CAPS [Suspect]
     Active Substance: GABAPENTIN
     Indication: MUSCLE SPASMS
     Dosage: 30 3 X 15/DAY
     Route: 048
     Dates: start: 20190822, end: 20190825
  5. MTX [Concomitant]
     Active Substance: METHOTREXATE SODIUM
  6. PREDNISONE. [Concomitant]
     Active Substance: PREDNISONE
  7. OMEPRAZOLE. [Concomitant]
     Active Substance: OMEPRAZOLE
  8. VITAMIN C [Concomitant]
     Active Substance: ASCORBIC ACID
  9. FOLIC ACID. [Concomitant]
     Active Substance: FOLIC ACID

REACTIONS (1)
  - Musculoskeletal stiffness [None]

NARRATIVE: CASE EVENT DATE: 20190823
